FAERS Safety Report 7415628-4 (Version None)
Quarter: 2011Q2

REPORT INFORMATION
  Report Type: 
  Country: None (occurrence: None)
  Receive Date: 20110414
  Receipt Date: 20110408
  Transmission Date: 20111010
  Serious: No
  Sender: FDA-Public Use
  Company Number: US-JNJFOC-20110308485

PATIENT
  Sex: Female
  Weight: 63.5 kg

DRUGS (8)
  1. CLONIDINE [Concomitant]
     Indication: SLEEP DISORDER
     Route: 048
  2. PREMARIN [Concomitant]
     Indication: OESTROGEN REPLACEMENT THERAPY
     Route: 048
  3. CARISOPRODOL [Concomitant]
     Indication: MUSCLE RELAXANT THERAPY
     Route: 048
  4. CLONIDINE [Concomitant]
     Indication: ANXIETY
     Route: 048
  5. OXYCODONE HCL AND ACETAMINOPHEN [Concomitant]
     Indication: PAIN
     Dosage: 10MG-325MG
     Route: 048
  6. DURAGESIC [Suspect]
     Indication: PAIN
     Route: 062
  7. LYRICA [Concomitant]
     Indication: PAIN
     Route: 048
  8. CELEXA [Concomitant]
     Indication: ANTIDEPRESSANT THERAPY
     Route: 048

REACTIONS (2)
  - DRUG EFFECT DECREASED [None]
  - INAPPROPRIATE SCHEDULE OF DRUG ADMINISTRATION [None]
